FAERS Safety Report 20462620 (Version 3)
Quarter: 2022Q2

REPORT INFORMATION
  Report Type: Report from Study
  Country: US (occurrence: US)
  Receive Date: 20220211
  Receipt Date: 20220418
  Transmission Date: 20220721
  Serious: Yes (Other)
  Sender: FDA-Public Use
  Company Number: US-BIOGEN-2022BI01094300

PATIENT
  Age: 67 Year
  Sex: Male

DRUGS (1)
  1. TYSABRI [Suspect]
     Active Substance: NATALIZUMAB
     Indication: Multiple sclerosis
     Route: 065
     Dates: start: 20210727

REACTIONS (11)
  - Neoplasm malignant [Unknown]
  - Asthenia [Unknown]
  - Memory impairment [Unknown]
  - Balance disorder [Unknown]
  - Gait disturbance [Unknown]
  - Tinnitus [Unknown]
  - Prescribed overdose [Unknown]
  - Drug ineffective [Unknown]
  - Dizziness [Unknown]
  - Vertigo [Unknown]
  - Infusion related reaction [Unknown]

NARRATIVE: CASE EVENT DATE: 20211201
